FAERS Safety Report 13967452 (Version 2)
Quarter: 2017Q3

REPORT INFORMATION
  Report Type: Spontaneous
  Country: US (occurrence: US)
  Receive Date: 20170914
  Receipt Date: 20170925
  Transmission Date: 20171128
  Serious: No
  Sender: FDA-Public Use
  Company Number: US-PFIZER INC-2017395752

PATIENT
  Age: 65 Year
  Sex: Female

DRUGS (9)
  1. ONDANSETRON [Concomitant]
     Active Substance: ONDANSETRON
     Dosage: 8 MG, UNK (TBD)
  2. IBRANCE [Suspect]
     Active Substance: PALBOCICLIB
     Dosage: 125 MG, CYCLIC [DAILY WITH FOOD FOR 21 DAYS ON, THEN 7 DAYS OFF EVERY 28 DAY CYCLE]
     Route: 048
     Dates: start: 20170831
  3. IBUPROFEN. [Concomitant]
     Active Substance: IBUPROFEN
     Dosage: 200 MG, UNK
  4. LIDOCAINE. [Concomitant]
     Active Substance: LIDOCAINE
     Dosage: UNK (2.5-2.5%)
  5. ATENOLOL. [Concomitant]
     Active Substance: ATENOLOL
     Dosage: 25 MG, UNK
  6. HYDROCODONE [Concomitant]
     Active Substance: HYDROCODONE
     Dosage: UNK (5MG-325MG)
  7. IBRANCE [Suspect]
     Active Substance: PALBOCICLIB
     Indication: BREAST CANCER FEMALE
     Dosage: 100 MG, CYCLIC (WITH FOOD FOR 21 DAYS ON, THEN 7 DAYS OFF EVERY 28 DAY CYCLE)
     Route: 048
     Dates: start: 20170831
  8. IBUPROFEN. [Concomitant]
     Active Substance: IBUPROFEN
     Dosage: 800 MG, UNK
  9. PROCHLORPERAZ [Concomitant]
     Active Substance: PROCHLORPERAZINE MALEATE
     Dosage: 10 MG, UNK

REACTIONS (4)
  - Upper respiratory tract infection [Not Recovered/Not Resolved]
  - White blood cell count decreased [Not Recovered/Not Resolved]
  - Myalgia [Not Recovered/Not Resolved]
  - Platelet count decreased [Not Recovered/Not Resolved]
